FAERS Safety Report 26107972 (Version 1)
Quarter: 2025Q4

REPORT INFORMATION
  Report Type: Spontaneous
  Country: US (occurrence: US)
  Receive Date: 20251201
  Receipt Date: 20251201
  Transmission Date: 20260117
  Serious: No
  Sender: NEUROCRINE BIOSCIENCES
  Company Number: US-NEUROCRINE BIOSCIENCES INC.-2025NBI15548

PATIENT
  Sex: Male

DRUGS (1)
  1. INGREZZA [Suspect]
     Active Substance: VALBENAZINE DITOSYLATE
     Indication: Cerebral disorder
     Dosage: 40 MILLIGRAM, QD
     Route: 065

REACTIONS (6)
  - Dyspepsia [Unknown]
  - Dysuria [Unknown]
  - Abdominal pain upper [Unknown]
  - Micturition urgency [Unknown]
  - Nausea [Unknown]
  - Off label use [Unknown]
